FAERS Safety Report 5988653-8 (Version None)
Quarter: 2008Q4

REPORT INFORMATION
  Report Type: 
  Country: None (occurrence: None)
  Receive Date: 20081204
  Receipt Date: 20081203
  Transmission Date: 20090506
  Serious: Yes (Death, Hospitalization)
  Sender: FDA-Public Use
  Company Number: 2008SP016011

PATIENT
  Age: 19 Year
  Sex: Female

DRUGS (14)
  1. CELESTAMINE TAB [Suspect]
     Indication: MALAISE
     Dosage: PO
     Route: 048
     Dates: start: 20070925
  2. CELESTAMINE TAB [Suspect]
     Indication: PYREXIA
     Dosage: PO
     Route: 048
     Dates: start: 20070925
  3. MEFENAMIC ACID [Suspect]
     Indication: MALAISE
     Dosage: PO
     Route: 048
     Dates: start: 20070925
  4. MEFENAMIC ACID [Suspect]
     Indication: PYREXIA
     Dosage: PO
     Route: 048
     Dates: start: 20070925
  5. TRANSAMIN (TRANEXAMIC ACID) [Suspect]
     Indication: MALAISE
     Dosage: PO
     Route: 048
     Dates: start: 20070925
  6. TRANSAMIN (TRANEXAMIC ACID) [Suspect]
     Indication: PYREXIA
     Dosage: PO
     Route: 048
     Dates: start: 20070925
  7. MUCOSTA (REBAMIPIDE) [Suspect]
     Indication: MALAISE
     Dosage: PO
     Route: 048
     Dates: start: 20080925
  8. MUCOSTA (REBAMIPIDE) [Suspect]
     Indication: PYREXIA
     Dosage: PO
     Route: 048
     Dates: start: 20080925
  9. KLARICID (CLARITHROMXCIN) [Suspect]
     Indication: MALAISE
     Dosage: PO
     Route: 048
     Dates: start: 20070925
  10. KLARICID (CLARITHROMXCIN) [Suspect]
     Indication: PYREXIA
     Dosage: PO
     Route: 048
     Dates: start: 20070925
  11. SULPERAZON (CEFOPERAZONE W/ SULBACTAM) [Suspect]
     Indication: MALAISE
     Dosage: INDRP
     Route: 041
     Dates: start: 20071002
  12. SULPERAZON (CEFOPERAZONE W/ SULBACTAM) [Suspect]
     Indication: PYREXIA
     Dosage: INDRP
     Route: 041
     Dates: start: 20071002
  13. CIPROFLOXAN (CIPROFLOXACIN HYDROCHLORIDE) [Concomitant]
     Indication: MALAISE
     Dosage: PO
     Route: 048
     Dates: start: 20071002
  14. CIPROFLOXAN (CIPROFLOXACIN HYDROCHLORIDE) [Concomitant]
     Indication: PYREXIA
     Dosage: PO
     Route: 048
     Dates: start: 20071002

REACTIONS (12)
  - ALTERED STATE OF CONSCIOUSNESS [None]
  - BRAIN OEDEMA [None]
  - CONTINUOUS HAEMODIAFILTRATION [None]
  - DIABETES INSIPIDUS [None]
  - ENCEPHALOPATHY [None]
  - HAEMODIALYSIS [None]
  - HEPATITIS FULMINANT [None]
  - LIVER TRANSPLANT [None]
  - OXYGEN SATURATION DECREASED [None]
  - POST PROCEDURAL COMPLICATION [None]
  - PUPILLARY REFLEX IMPAIRED [None]
  - RESPIRATORY ARREST [None]
